FAERS Safety Report 6127924-1 (Version None)
Quarter: 2009Q1

REPORT INFORMATION
  Report Type: 
  Country: None (occurrence: None)
  Receive Date: 20090323
  Receipt Date: 20090319
  Transmission Date: 20090719
  Serious: Yes (Life-Threatening)
  Sender: FDA-Public Use
  Company Number: DE-ASTRAZENECA-2009PK00795

PATIENT
  Age: 27579 Day
  Sex: Male

DRUGS (2)
  1. MEROPENEM [Suspect]
     Indication: SEPSIS
     Route: 041
     Dates: start: 20090225
  2. MEROPENEM [Suspect]
     Indication: SEPTIC SHOCK
     Route: 041
     Dates: start: 20090225

REACTIONS (1)
  - CARDIAC ARREST [None]
